FAERS Safety Report 13134280 (Version 2)
Quarter: 2017Q2

REPORT INFORMATION
  Report Type: Spontaneous
  Country: FR (occurrence: FR)
  Receive Date: 20170120
  Receipt Date: 20170405
  Transmission Date: 20170830
  Serious: Yes (Death, Life-Threatening, Hospitalization)
  Sender: FDA-Public Use
  Company Number: FR-ASTRAZENECA-2017SE04657

PATIENT
  Age: 33319 Day
  Sex: Male

DRUGS (12)
  1. MIRTAZAPINE. [Suspect]
     Active Substance: MIRTAZAPINE
     Dosage: REDUCED TO UNKNOWN DOSE
     Route: 065
  2. MIRTAZAPINE. [Suspect]
     Active Substance: MIRTAZAPINE
     Route: 065
  3. IMIPENEM [Suspect]
     Active Substance: IMIPENEM
     Indication: KLEBSIELLA INFECTION
     Route: 042
     Dates: start: 20161221
  4. KARDEGIC [Suspect]
     Active Substance: ASPIRIN LYSINE
     Route: 065
  5. ZOPICLONE [Suspect]
     Active Substance: ZOPICLONE
     Route: 065
  6. LASILIX [Suspect]
     Active Substance: FUROSEMIDE
     Route: 065
  7. LASILIX [Suspect]
     Active Substance: FUROSEMIDE
     Dosage: REDUCED TO UNKNOWN DOSE
     Route: 065
  8. HUMALOG [Suspect]
     Active Substance: INSULIN LISPRO
     Route: 065
     Dates: start: 20161224
  9. INEXIUM [Suspect]
     Active Substance: ESOMEPRAZOLE
     Route: 048
  10. LANTUS [Suspect]
     Active Substance: INSULIN GLARGINE
     Route: 058
  11. ZAMUDOL SR [Suspect]
     Active Substance: TRAMADOL HYDROCHLORIDE
     Route: 065
  12. TYGACIL [Suspect]
     Active Substance: TIGECYCLINE
     Indication: OSTEITIS
     Dosage: 2.0DF UNKNOWN
     Route: 042
     Dates: start: 20161221

REACTIONS (8)
  - Acute respiratory failure [Fatal]
  - Klebsiella infection [Unknown]
  - Disseminated intravascular coagulation [Fatal]
  - Coma [Unknown]
  - Implant site infection [Unknown]
  - Hypoglycaemia [Recovered/Resolved]
  - Osteitis [Unknown]
  - Hyperglycaemia [Unknown]

NARRATIVE: CASE EVENT DATE: 20161219
